FAERS Safety Report 7930207-8 (Version None)
Quarter: 2011Q4

REPORT INFORMATION
  Report Type: 
  Country: None (occurrence: None)
  Receive Date: 20111118
  Receipt Date: 20111118
  Transmission Date: 20120403
  Serious: No
  Sender: FDA-Public Use
  Company Number: None

PATIENT
  Age: 81 Year
  Sex: Male
  Weight: 94.5 kg

DRUGS (1)
  1. BUDESONIDE/FORMOTEROL [Suspect]
     Dosage: 160 MCG BID INHALE
     Route: 055
     Dates: start: 20110730, end: 20110822

REACTIONS (3)
  - VOMITING [None]
  - HEADACHE [None]
  - NAUSEA [None]
